FAERS Safety Report 17351759 (Version 1)
Quarter: 2020Q1

REPORT INFORMATION
  Report Type: Spontaneous
  Country: AU (occurrence: AU)
  Receive Date: 20200130
  Receipt Date: 20200130
  Transmission Date: 20200409
  Serious: No
  Sender: FDA-Public Use
  Company Number: AU-009507513-2001AUS008320

PATIENT
  Sex: Male

DRUGS (1)
  1. ELEUPHRAT [Suspect]
     Active Substance: BETAMETHASONE DIPROPIONATE
     Indication: ORAL LICHEN PLANUS

REACTIONS (2)
  - Incorrect route of product administration [Unknown]
  - Product prescribing issue [Unknown]
